FAERS Safety Report 6479584-8 (Version None)
Quarter: 2009Q4

REPORT INFORMATION
  Report Type: 
  Country: None (occurrence: None)
  Receive Date: 20091208
  Receipt Date: 20091130
  Transmission Date: 20100525
  Serious: Yes (Other)
  Sender: FDA-Public Use
  Company Number: US-JNJFOC-20091200606

PATIENT
  Sex: Male
  Weight: 88.45 kg

DRUGS (3)
  1. DURAGESIC-100 [Suspect]
     Indication: BACK DISORDER
     Route: 062
  2. DURAGESIC-100 [Suspect]
     Route: 062
  3. UNKNOWN MEDICATION [Concomitant]
     Indication: BACK DISORDER
     Route: 065

REACTIONS (6)
  - APPLICATION SITE IRRITATION [None]
  - BACK PAIN [None]
  - DRUG ADMINISTERED AT INAPPROPRIATE SITE [None]
  - DRUG DOSE OMISSION [None]
  - PRODUCT ADHESION ISSUE [None]
  - WRONG TECHNIQUE IN DRUG USAGE PROCESS [None]
